FAERS Safety Report 16366043 (Version 1)
Quarter: 2019Q3

REPORT INFORMATION
  Report Type: Spontaneous
  Country: US (occurrence: US)
  Receive Date: 20190527
  Receipt Date: 20190527
  Transmission Date: 20191004
  Serious: Yes (Life-Threatening)
  Sender: FDA-Public Use
  Company Number: None

PATIENT
  Age: 80 Year
  Sex: Female
  Weight: 83.25 kg

DRUGS (2)
  1. PURE LEAF ICED TEA CAFFEINE FREE [Suspect]
     Active Substance: HERBALS\TEA LEAF
  2. COUMADIN [Suspect]
     Active Substance: WARFARIN SODIUM

REACTIONS (3)
  - Herbal interaction [None]
  - Prothrombin time prolonged [None]
  - Product use complaint [None]

NARRATIVE: CASE EVENT DATE: 20190429
